FAERS Safety Report 5263373-6 (Version None)
Quarter: 2007Q1

REPORT INFORMATION
  Report Type: 
  Country: None (occurrence: None)
  Receive Date: 20070313
  Receipt Date: 20070305
  Transmission Date: 20070707
  Serious: Yes (Death, Other)
  Sender: FDA-Public Use
  Company Number: DE-ELI_LILLY_AND_COMPANY-DE200703001046

PATIENT
  Age: 37 Year
  Sex: Female

DRUGS (5)
  1. ZYPREXA [Suspect]
     Indication: PSYCHOTIC DISORDER
     Dosage: 10 MG, DAILY (1/D)
     Route: 048
     Dates: start: 20000101
  2. ZYPREXA [Suspect]
     Dosage: 30 MG, DAILY (1/D)
     Route: 048
  3. FLUPENTIXOL [Concomitant]
     Indication: PSYCHOTIC DISORDER
     Dosage: 40 MG, DAILY (1/D)
     Route: 048
  4. FLUPENTIXOL [Concomitant]
     Route: 030
     Dates: start: 20000101
  5. CHLORPROTHIXEN [Concomitant]
     Indication: PSYCHOTIC DISORDER
     Dosage: 200 MG, DAILY (1/D)
     Route: 048

REACTIONS (6)
  - FALL [None]
  - OVERDOSE [None]
  - PANCREATITIS ACUTE [None]
  - SYNCOPE [None]
  - TOOTH INJURY [None]
  - WEIGHT INCREASED [None]
